FAERS Safety Report 4539298-8 (Version None)
Quarter: 2004Q4

REPORT INFORMATION
  Report Type: 
  Country: None (occurrence: None)
  Receive Date: 20041222
  Receipt Date: 20041209
  Transmission Date: 20050328
  Serious: Yes (Hospitalization, Other)
  Sender: FDA-Public Use
  Company Number: 2004230394DE

PATIENT
  Age: 47 Year
  Sex: Male
  Weight: 80 kg

DRUGS (9)
  1. PEGVISOMANT POWDER, STERILE (PEGVISOMANT) [Suspect]
     Indication: ACROMEGALY
     Dosage: 10 MG (1 D), SUBCUTANEOUS; 15 MG (1 D), SUBCUTANEOUS; 20 MG (1 D), SUBCUTANEOUS
     Route: 058
     Dates: start: 20040212, end: 20040502
  2. PEGVISOMANT POWDER, STERILE (PEGVISOMANT) [Suspect]
     Indication: ACROMEGALY
     Dosage: 10 MG (1 D), SUBCUTANEOUS; 15 MG (1 D), SUBCUTANEOUS; 20 MG (1 D), SUBCUTANEOUS
     Route: 058
     Dates: start: 20040503, end: 20040811
  3. PEGVISOMANT POWDER, STERILE (PEGVISOMANT) [Suspect]
     Indication: ACROMEGALY
     Dosage: 10 MG (1 D), SUBCUTANEOUS; 15 MG (1 D), SUBCUTANEOUS; 20 MG (1 D), SUBCUTANEOUS
     Route: 058
     Dates: start: 20040812, end: 20041119
  4. HYDROCORTISONE [Concomitant]
  5. LEVOTHYROXINE SODIUM [Concomitant]
  6. LANREOTIDE (LANREOTIDE) [Concomitant]
  7. BROMOCRIPTINE MESYLATE [Concomitant]
  8. CABERGOLINE [Concomitant]
  9. OCTREOTIDE ACETATE (OCTREOTIDE ACETATE) [Concomitant]

REACTIONS (2)
  - PITUITARY TUMOUR RECURRENT [None]
  - SYNCOPE [None]
